FAERS Safety Report 9360913 (Version 2)
Quarter: 2013Q3

REPORT INFORMATION
  Report Type: Spontaneous
  Country: US (occurrence: None)
  Receive Date: 20130618
  Receipt Date: 20130716
  Transmission Date: 20140515
  Serious: Yes (Other)
  Sender: FDA-Public Use
  Company Number: ACO_36723_2013

PATIENT
  Age: 48 Year
  Sex: Male
  Weight: 68 kg

DRUGS (10)
  1. AMPYRA [Suspect]
     Indication: SECONDARY PROGRESSIVE MULTIPLE SCLEROSIS
     Route: 048
     Dates: start: 201102
  2. AMPYRA [Suspect]
     Indication: GAIT DISTURBANCE
     Route: 048
     Dates: start: 201102
  3. CELEBREX (CELECOXIB) [Concomitant]
  4. CITALOPRAM [Concomitant]
  5. VITAMIN D (ERGOCALCIFEROL) CAPSULE [Concomitant]
  6. ALENDRONATE SODIUM (ALENDRONATE SODIUM) TABLET [Concomitant]
  7. TRAMADOL HYDROCHLORIDE (TRAMADOL HYDROCHLORIDE) [Concomitant]
  8. DEXAMETHASONE (DEXAMETHASONE SODIUM SUCCINATE) TABLET [Concomitant]
  9. AMBIEN (ZOLPIDEM TARTRATE) [Concomitant]
  10. OMEPRAZOLE (OMEPRAZOLE) [Concomitant]

REACTIONS (5)
  - Knee arthroplasty [None]
  - Knee operation [None]
  - Eczema [None]
  - Surgery [None]
  - Eczema [None]
